FAERS Safety Report 6841261-9 (Version None)
Quarter: 2010Q3

REPORT INFORMATION
  Report Type: 
  Country: None (occurrence: None)
  Receive Date: 20100714
  Receipt Date: 20070628
  Transmission Date: 20110219
  Serious: No
  Sender: FDA-Public Use
  Company Number: US-PFIZER INC-2007055233

PATIENT
  Sex: Female
  Weight: 68.181 kg

DRUGS (2)
  1. CHANTIX [Suspect]
     Indication: SMOKING CESSATION THERAPY
     Dates: start: 20070409, end: 20070503
  2. TAZORAC [Concomitant]

REACTIONS (9)
  - ABDOMINAL DISTENSION [None]
  - BLOOD CHOLESTEROL INCREASED [None]
  - BLOOD TRIGLYCERIDES INCREASED [None]
  - FLATULENCE [None]
  - PHOTOSENSITIVITY REACTION [None]
  - PRURITUS [None]
  - RASH [None]
  - RASH ERYTHEMATOUS [None]
  - SUNBURN [None]
